APPROVED DRUG PRODUCT: TOPIRAMATE
Active Ingredient: TOPIRAMATE
Strength: 25MG
Dosage Form/Route: TABLET;ORAL
Application: A078637 | Product #001
Applicant: ACTAVIS TOTOWA LLC
Approved: Feb 27, 2013 | RLD: No | RS: No | Type: DISCN